FAERS Safety Report 5658640-8 (Version None)
Quarter: 2008Q1

REPORT INFORMATION
  Report Type: 
  Country: None (occurrence: None)
  Receive Date: 20080310
  Receipt Date: 20070315
  Transmission Date: 20080703
  Serious: No
  Sender: FDA-Public Use
  Company Number: US-BAYER-200710803BCC

PATIENT
  Age: 43 Year
  Sex: Male
  Weight: 102 kg

DRUGS (7)
  1. ALEVE [Suspect]
     Indication: MYALGIA
     Dosage: UNIT DOSE: 220 MG
     Route: 048
     Dates: start: 20070314
  2. GLYBURIDE [Concomitant]
  3. METFORMIN HCL [Concomitant]
  4. SINGULAIR [Concomitant]
  5. CLARITIN [Concomitant]
  6. ACTOS [Concomitant]
  7. LISINOPRIL [Concomitant]

REACTIONS (1)
  - ASTHMA [None]
